FAERS Safety Report 14713778 (Version 2)
Quarter: 2018Q2

REPORT INFORMATION
  Report Type: Spontaneous
  Country: TR (occurrence: TR)
  Receive Date: 20180404
  Receipt Date: 20180407
  Transmission Date: 20180711
  Serious: Yes (Life-Threatening, Hospitalization)
  Sender: FDA-Public Use
  Company Number: PHHY2018TR058102

PATIENT
  Age: 34 Year
  Sex: Male
  Weight: 74 kg

DRUGS (2)
  1. BETASERC [Concomitant]
     Active Substance: BETAHISTINE
     Indication: VERTIGO
     Dosage: 100 MG, QD
     Route: 048
     Dates: start: 20180210, end: 20180227
  2. URIKOLIZ [Suspect]
     Active Substance: ALLOPURINOL
     Indication: BLOOD URIC ACID INCREASED
     Dosage: 300 MG, QD
     Route: 048
     Dates: start: 20180210, end: 20180227

REACTIONS (5)
  - Conjunctivitis [Recovering/Resolving]
  - Pyrexia [Recovered/Resolved]
  - Dysphagia [Recovered/Resolved]
  - Asthenia [Recovering/Resolving]
  - Stevens-Johnson syndrome [Recovering/Resolving]

NARRATIVE: CASE EVENT DATE: 20180224
